FAERS Safety Report 9064956 (Version 1)
Quarter: 2013Q1

REPORT INFORMATION
  Report Type: Report from Study
  Country: US (occurrence: US)
  Receive Date: 20130130
  Receipt Date: 20130130
  Transmission Date: 20140127
  Serious: No
  Sender: FDA-Public Use
  Company Number: US-ABBOTT-12P-163-0969956-00

PATIENT
  Sex: Female
  Weight: 61.29 kg

DRUGS (6)
  1. HUMIRA 40 MG/0.8 ML PEN [Suspect]
     Indication: PSORIATIC ARTHROPATHY
     Dates: start: 20120515, end: 201207
  2. ZOLOFT [Concomitant]
     Indication: DEPRESSION
  3. CLONOPIN [Concomitant]
     Indication: RESTLESS LEGS SYNDROME
  4. MIRAPEX [Concomitant]
     Indication: RESTLESS LEGS SYNDROME
  5. LORTAB [Concomitant]
     Indication: PAIN
  6. VIVANCE [Concomitant]
     Indication: ATTENTION DEFICIT/HYPERACTIVITY DISORDER

REACTIONS (3)
  - Psoriatic arthropathy [Not Recovered/Not Resolved]
  - Joint swelling [Not Recovered/Not Resolved]
  - Joint swelling [Not Recovered/Not Resolved]
